FAERS Safety Report 22948451 (Version 2)
Quarter: 2023Q4

REPORT INFORMATION
  Report Type: Report from Study
  Country: DE (occurrence: DE)
  Receive Date: 20230915
  Receipt Date: 20231208
  Transmission Date: 20240110
  Serious: Yes (Hospitalization, Other)
  Sender: FDA-Public Use
  Company Number: DE-002147023-NVSC2023DE196284

PATIENT
  Sex: Female

DRUGS (4)
  1. COSENTYX [Suspect]
     Active Substance: SECUKINUMAB
     Indication: Psoriasis
     Dosage: 300 MG, QMO
     Route: 058
     Dates: start: 20220511, end: 20230112
  2. COSENTYX [Suspect]
     Active Substance: SECUKINUMAB
     Indication: Psoriasis
     Dosage: UNK
     Route: 065
     Dates: start: 20230107
  3. CLOBETASOL [Concomitant]
     Active Substance: CLOBETASOL
     Indication: Product used for unknown indication
     Dosage: UNK
     Route: 065
  4. ASPIRIN [Concomitant]
     Active Substance: ASPIRIN
     Indication: Product used for unknown indication
     Dosage: 1 DOSAGE FORM, QD
     Route: 065

REACTIONS (14)
  - Pyoderma gangrenosum [Recovered/Resolved]
  - Skin ulcer [Recovered/Resolved]
  - Beta haemolytic streptococcal infection [Unknown]
  - Hypertension [Unknown]
  - Streptococcus test positive [Unknown]
  - Blood immunoglobulin E increased [Unknown]
  - White blood cells urine positive [Unknown]
  - Antineutrophil cytoplasmic antibody positive [Unknown]
  - Lipoprotein (a) increased [Unknown]
  - Proteus test positive [Unknown]
  - Bacterial test positive [Unknown]
  - Haematuria [Unknown]
  - Kyphosis [Unknown]
  - Spinal osteoarthritis [Unknown]

NARRATIVE: CASE EVENT DATE: 20221001
